FAERS Safety Report 6315699-2 (Version None)
Quarter: 2009Q3

REPORT INFORMATION
  Report Type: 
  Country: None (occurrence: None)
  Receive Date: 20090818
  Receipt Date: 20090803
  Transmission Date: 20100115
  Serious: Yes (Other)
  Sender: FDA-Public Use
  Company Number: DSU-2009-01582

PATIENT
  Age: 47 Year
  Sex: Female
  Weight: 123.832 kg

DRUGS (6)
  1. WELCHOL [Suspect]
     Indication: DIABETES MELLITUS
     Dosage: 3800 MG (1900 MG, BID), PER ORAL
     Route: 048
     Dates: start: 20090209, end: 20090217
  2. WELCHOL [Suspect]
     Indication: HYPERLIPIDAEMIA
     Dosage: 3800 MG (1900 MG, BID), PER ORAL
     Route: 048
     Dates: start: 20090209, end: 20090217
  3. METFORMIN HCL [Concomitant]
  4. PROZAC [Concomitant]
  5. LISINOPRIL [Concomitant]
  6. UNSPECIFIED PAIN MEDICATION (ANALGESICS) [Concomitant]

REACTIONS (9)
  - AGEUSIA [None]
  - AUTOIMMUNE DISORDER [None]
  - BLOOD PRESSURE DECREASED [None]
  - FEAR OF FALLING [None]
  - INCORRECT DOSE ADMINISTERED [None]
  - MUSCLE SPASMS [None]
  - MUSCULAR WEAKNESS [None]
  - PRURITUS GENERALISED [None]
  - RASH [None]
